FAERS Safety Report 12540874 (Version 1)
Quarter: 2016Q3

REPORT INFORMATION
  Report Type: Spontaneous
  Country: BG (occurrence: BG)
  Receive Date: 20160708
  Receipt Date: 20160708
  Transmission Date: 20161109
  Serious: Yes (Other)
  Sender: FDA-Public Use
  Company Number: BG-009507513-1606BGR005212

PATIENT
  Sex: Female

DRUGS (1)
  1. PEGINTRON [Suspect]
     Active Substance: PEGINTERFERON ALFA-2B

REACTIONS (3)
  - Suspected transmission of an infectious agent via product [Unknown]
  - Injury associated with device [Unknown]
  - Occupational exposure to product [Unknown]
